FAERS Safety Report 22198592 (Version 6)
Quarter: 2024Q1

REPORT INFORMATION
  Report Type: Spontaneous
  Country: US (occurrence: US)
  Receive Date: 20230411
  Receipt Date: 20240322
  Transmission Date: 20240410
  Serious: Yes (Other)
  Sender: FDA-Public Use
  Company Number: US-BRISTOL-MYERS SQUIBB COMPANY-2023-048625

PATIENT
  Age: 75 Year
  Sex: Female

DRUGS (2)
  1. LENALIDOMIDE [Suspect]
     Active Substance: LENALIDOMIDE
     Indication: Plasma cell myeloma in remission
     Dosage: TAKE 1 CAPSULE BY MOUTH FOR 21 DAYS ON FOLLOWED BY 7 DAYS OFF, EVERY 28-DAY CYCLE
     Route: 048
     Dates: start: 20221111
  2. LENALIDOMIDE [Suspect]
     Active Substance: LENALIDOMIDE
     Dosage: TAKE 1 CAPSULE BY MOUTH FOR 21 DAYS ON FOLLOWED BY 7 DAYS OFF, EVERY 28-DAY CYCLE.
     Route: 048
     Dates: start: 20221214

REACTIONS (6)
  - Cough [Recovering/Resolving]
  - Oral herpes [Recovering/Resolving]
  - Bronchitis [Recovering/Resolving]
  - Diarrhoea [Not Recovered/Not Resolved]
  - Vomiting [Not Recovered/Not Resolved]
  - Gastroenteritis viral [Not Recovered/Not Resolved]
